FAERS Safety Report 5942777-X (Version None)
Quarter: 2008Q4

REPORT INFORMATION
  Report Type: 
  Country: None (occurrence: None)
  Receive Date: 20081106
  Receipt Date: 20081029
  Transmission Date: 20090506
  Serious: Yes (Hospitalization)
  Sender: FDA-Public Use
  Company Number: FR-JNJFOC-20081006843

PATIENT
  Sex: Male

DRUGS (7)
  1. RISPERDAL [Suspect]
     Indication: ABNORMAL BEHAVIOUR
     Route: 048
  2. TERCIAN [Suspect]
     Indication: ABNORMAL BEHAVIOUR
     Route: 048
  3. BRISTOPEN [Suspect]
     Indication: ERYSIPELAS
     Route: 065
  4. BRISTOPEN [Suspect]
     Indication: SKIN ULCER
     Route: 065
  5. GENTALLINE [Suspect]
     Indication: ERYSIPELAS
     Route: 065
  6. GENTALLINE [Suspect]
     Indication: SKIN ULCER
     Route: 065
  7. RIVOTRIL [Concomitant]
     Indication: ABNORMAL BEHAVIOUR
     Route: 048

REACTIONS (6)
  - ERYSIPELAS [None]
  - ESCHAR [None]
  - OSTEITIS [None]
  - RENAL FAILURE ACUTE [None]
  - SKIN ULCER [None]
  - URINARY RETENTION [None]
